FAERS Safety Report 22590170 (Version 1)
Quarter: 2023Q2

REPORT INFORMATION
  Report Type: Report from Study
  Country: TR (occurrence: TR)
  Receive Date: 20230612
  Receipt Date: 20230612
  Transmission Date: 20230721
  Serious: Yes (Other)
  Sender: FDA-Public Use
  Company Number: TR-002147023-NVSC2023TR132790

PATIENT
  Sex: Female
  Weight: 13.5 kg

DRUGS (1)
  1. OMNITROPE [Suspect]
     Active Substance: SOMATROPIN
     Indication: Growth hormone deficiency
     Dosage: UNK, QD (7 PER WEEK)
     Route: 058
     Dates: start: 20230524, end: 20230606

REACTIONS (1)
  - Bladder mass [Unknown]
